FAERS Safety Report 21167963 (Version 1)
Quarter: 2022Q3

REPORT INFORMATION
  Report Type: Spontaneous
  Country: US (occurrence: US)
  Receive Date: 20220803
  Receipt Date: 20220803
  Transmission Date: 20221026
  Serious: Yes (Hospitalization)
  Sender: FDA-Public Use
  Company Number: US-Fresenius Medical Care Renal Therapies Group-FMC-2207-001099

PATIENT
  Age: 49 Year
  Sex: Male

DRUGS (1)
  1. DELFLEX WITH DEXTROSE 2.5% LOW MAGNESIUM LOW CALCIUM [Suspect]
     Active Substance: CALCIUM CHLORIDE\DEXTROSE\MAGNESIUM CHLORIDE\SODIUM CHLORIDE\SODIUM LACTATE
     Indication: End stage renal disease
     Dosage: FILLS= 6; FV= 2L; TV= 11,500ML; PAUSES= 1; PV= 1,500ML; LFV= 2L.
     Route: 033

REACTIONS (7)
  - Cardiac failure congestive [Recovering/Resolving]
  - Chronic obstructive pulmonary disease [Recovering/Resolving]
  - Pulmonary oedema [Recovering/Resolving]
  - Hyperkalaemia [Recovering/Resolving]
  - Azotaemia [Recovering/Resolving]
  - Hypervolaemia [Recovering/Resolving]
  - Hypervolaemia [Recovering/Resolving]

NARRATIVE: CASE EVENT DATE: 20220708
